FAERS Safety Report 4753881-6 (Version None)
Quarter: 2005Q3

REPORT INFORMATION
  Report Type: 
  Country: None (occurrence: None)
  Receive Date: 20050825
  Receipt Date: 20050817
  Transmission Date: 20060218
  Serious: Yes (Life-Threatening)
  Sender: FDA-Public Use
  Company Number: 216459

PATIENT
  Age: 44 Year
  Sex: Female
  Weight: 86.6 kg

DRUGS (8)
  1. XOLAIR [Suspect]
     Indication: ASTHMA
     Dosage: 150 MG, 1/MONTH, SUBCUTANEOUS
     Route: 058
     Dates: start: 20050525, end: 20050721
  2. FLOVENT (FLUTICAONSE PROPIOANTE) [Concomitant]
  3. ATROVENT [Concomitant]
  4. ALBUTEROL (ALBUTEROL, ALBUTEROL SULFATE) [Concomitant]
  5. DUONEB (IPRATROPIUM BROMIDE, ALBUTEROL SULFATE, ALBUTEROL) [Concomitant]
  6. ACCOLATE (ZAFIRLUKST) [Concomitant]
  7. XANAX [Concomitant]
  8. ACCUPRIL [Concomitant]

REACTIONS (1)
  - HYPERSENSITIVITY [None]
